FAERS Safety Report 7402504-6 (Version None)
Quarter: 2011Q2

REPORT INFORMATION
  Report Type: 
  Country: None (occurrence: None)
  Receive Date: 20110408
  Receipt Date: 20110404
  Transmission Date: 20111010
  Serious: Yes (Death)
  Sender: FDA-Public Use
  Company Number: PHHY2010US79050

PATIENT
  Sex: Female
  Weight: 150 kg

DRUGS (1)
  1. AFINITOR [Suspect]
     Indication: MALIGNANT URINARY TRACT NEOPLASM
     Dosage: 10 MG, UNK
     Route: 048
     Dates: start: 20100209

REACTIONS (1)
  - DEATH [None]
